FAERS Safety Report 4864557-9 (Version None)
Quarter: 2005Q4

REPORT INFORMATION
  Report Type: 
  Country: None (occurrence: None)
  Receive Date: 20051222
  Receipt Date: 20051103
  Transmission Date: 20060501
  Serious: Yes (Other)
  Sender: FDA-Public Use
  Company Number: LT-AVENTIS-200519909GDDC

PATIENT
  Sex: Male
  Weight: 90 kg

DRUGS (3)
  1. LANTUS [Suspect]
     Indication: DIABETES MELLITUS
     Dosage: DOSE UNIT: UNITS
     Route: 058
     Dates: start: 20050301
  2. HUMALOG MIX [Concomitant]
     Indication: DIABETES MELLITUS
     Route: 058
  3. MONOPRIL [Concomitant]
     Indication: HYPERTENSION
     Route: 048
     Dates: start: 20000101

REACTIONS (7)
  - EYE HAEMORRHAGE [None]
  - HYPERTENSION [None]
  - MACULOPATHY [None]
  - PSEUDOPHAKIA [None]
  - RETINOPATHY PROLIFERATIVE [None]
  - VISION BLURRED [None]
  - VITREOUS HAEMORRHAGE [None]
